FAERS Safety Report 20637453 (Version 1)
Quarter: 2022Q1

REPORT INFORMATION
  Report Type: Report from Study
  Country: US (occurrence: US)
  Receive Date: 20220325
  Receipt Date: 20220325
  Transmission Date: 20220423
  Serious: Yes (Other)
  Sender: FDA-Public Use
  Company Number: US-JNJFOC-20220200153

PATIENT
  Age: 53 Year
  Sex: Female
  Weight: 73 kg

DRUGS (3)
  1. DARATUMUMAB [Suspect]
     Active Substance: DARATUMUMAB
     Indication: Chronic lymphocytic leukaemia
     Route: 065
     Dates: start: 20220120
  2. DARATUMUMAB [Suspect]
     Active Substance: DARATUMUMAB
     Dosage: C1D8
     Route: 065
     Dates: start: 20220126
  3. IBRUTINIB [Suspect]
     Active Substance: IBRUTINIB
     Indication: Chronic lymphocytic leukaemia
     Dosage: NO DRUG GIVEN
     Route: 048

REACTIONS (1)
  - Choroidal effusion [Recovered/Resolved]

NARRATIVE: CASE EVENT DATE: 20220120
